FAERS Safety Report 6678726-9 (Version None)
Quarter: 2010Q2

REPORT INFORMATION
  Report Type: 
  Country: None (occurrence: None)
  Receive Date: 20100408
  Receipt Date: 20100330
  Transmission Date: 20101027
  Serious: Yes (Death, Other)
  Sender: FDA-Public Use
  Company Number: 2010PL000040

PATIENT
  Age: 32 Year
  Sex: Male

DRUGS (2)
  1. AZATHIOPRINE [Suspect]
     Indication: IMMUNOSUPPRESSANT DRUG THERAPY
     Dosage: 300 MG; QD
     Dates: start: 20000101
  2. PREDNISOLONE [Concomitant]

REACTIONS (6)
  - B-CELL LYMPHOMA STAGE III [None]
  - BLOOD CREATININE INCREASED [None]
  - HAEMOGLOBIN DECREASED [None]
  - LEFT VENTRICULAR HYPERTROPHY [None]
  - LEUKOPENIA [None]
  - SEPSIS [None]
